FAERS Safety Report 9522757 (Version 1)
Quarter: 2013Q3

REPORT INFORMATION
  Report Type: Spontaneous
  Country: JP (occurrence: None)
  Receive Date: 20130829
  Receipt Date: 20130829
  Transmission Date: 20140515
  Serious: Yes (Other)
  Sender: FDA-Public Use
  Company Number: 0238774

PATIENT
  Age: 69 Year
  Sex: Male

DRUGS (1)
  1. TACHOSIL [Suspect]
     Indication: PROPHYLAXIS
     Dosage: 1 SHEETS OF REGULAR SIZE (1 TISSUE SEALING SHEET OF REGULAR SIZE)
     Dates: start: 20130307

REACTIONS (3)
  - Circulatory collapse [None]
  - Ascites [None]
  - Gastritis [None]
